FAERS Safety Report 12378743 (Version 5)
Quarter: 2016Q3

REPORT INFORMATION
  Report Type: Spontaneous
  Country: US (occurrence: US)
  Receive Date: 20160517
  Receipt Date: 20160728
  Transmission Date: 20161109
  Serious: Yes (Life-Threatening, Hospitalization, Other)
  Sender: FDA-Public Use
  Company Number: US-LUNDBECK-DKLU2013681

PATIENT
  Sex: Female

DRUGS (3)
  1. NORTHERA [Suspect]
     Active Substance: DROXIDOPA
     Indication: PARKINSON^S DISEASE
     Route: 048
     Dates: start: 201507, end: 20160501
  2. NORTHERA [Suspect]
     Active Substance: DROXIDOPA
     Route: 048
     Dates: start: 20160429, end: 20160629
  3. NORTHERA [Suspect]
     Active Substance: DROXIDOPA
     Route: 048
     Dates: end: 20160510

REACTIONS (15)
  - Vomiting [Unknown]
  - Dyspnoea [Not Recovered/Not Resolved]
  - Gait disturbance [Not Recovered/Not Resolved]
  - Diarrhoea [Unknown]
  - Asthenia [Not Recovered/Not Resolved]
  - Skin discomfort [Unknown]
  - Blood pressure increased [Unknown]
  - Headache [Unknown]
  - Urinary tract infection [Unknown]
  - Chest pain [Not Recovered/Not Resolved]
  - Swelling [Not Recovered/Not Resolved]
  - Sepsis [Unknown]
  - Heart rate decreased [Not Recovered/Not Resolved]
  - Condition aggravated [Unknown]
  - Eye swelling [Not Recovered/Not Resolved]
